FAERS Safety Report 7258139-1 (Version None)
Quarter: 2011Q1

REPORT INFORMATION
  Report Type: 
  Country: None (occurrence: None)
  Receive Date: 20110129
  Receipt Date: 20100725
  Transmission Date: 20110831
  Serious: No
  Sender: FDA-Public Use
  Company Number: US-ABBOTT-10P-163-0659894-00

PATIENT
  Sex: Female
  Weight: 58.112 kg

DRUGS (3)
  1. HUMIRA [Suspect]
     Indication: RHEUMATOID ARTHRITIS
     Route: 058
     Dates: start: 20100401
  2. METHOTREXATE [Concomitant]
     Indication: PRODUCT USED FOR UNKNOWN INDICATION
  3. FOLIC ACID [Concomitant]
     Indication: PRODUCT USED FOR UNKNOWN INDICATION

REACTIONS (5)
  - INJECTION SITE PAIN [None]
  - INJECTION SITE HAEMATOMA [None]
  - INJECTION SITE EXTRAVASATION [None]
  - INJECTION SITE VESICLES [None]
  - INJECTION SITE HAEMORRHAGE [None]
